FAERS Safety Report 4724430-3 (Version None)
Quarter: 2005Q3

REPORT INFORMATION
  Report Type: 
  Country: None (occurrence: None)
  Receive Date: 20050721
  Receipt Date: 20050701
  Transmission Date: 20060218
  Serious: Yes (Hospitalization)
  Sender: FDA-Public Use
  Company Number: EWC050543833

PATIENT
  Age: 61 Year
  Sex: Male
  Weight: 70 kg

DRUGS (10)
  1. PEMETREXED [Suspect]
     Indication: NON-SMALL CELL LUNG CANCER
     Dosage: 500 MG/M2
     Dates: start: 20050425
  2. CISPLATIN [Suspect]
     Indication: NON-SMALL CELL LUNG CANCER
     Dosage: 75 MG/M2
     Dates: start: 20050425
  3. ACETAMINOPHEN [Concomitant]
  4. NADROPARINE CALCIUM [Concomitant]
  5. SIMVASTATIN ^ORIFARM^ (SIMVASTATIN RATIOPHARM) [Concomitant]
  6. PIRACETAM [Concomitant]
  7. FOLIC ACID [Concomitant]
  8. OL-AMINE [Concomitant]
  9. VITAMIN B-12 [Concomitant]
  10. DEXAMETHASONE [Concomitant]

REACTIONS (10)
  - ALANINE AMINOTRANSFERASE INCREASED [None]
  - ASPARTATE AMINOTRANSFERASE INCREASED [None]
  - BLOOD LACTATE DEHYDROGENASE INCREASED [None]
  - HAEMOGLOBIN DECREASED [None]
  - HEPATIC CYST [None]
  - METASTASES TO LIVER [None]
  - PERIPHERAL ISCHAEMIA [None]
  - RENAL IMPAIRMENT [None]
  - RENAL INFARCT [None]
  - WHITE BLOOD CELL COUNT INCREASED [None]
